FAERS Safety Report 19071045 (Version 1)
Quarter: 2021Q1

REPORT INFORMATION
  Report Type: Spontaneous
  Country: US (occurrence: US)
  Receive Date: 20210330
  Receipt Date: 20210330
  Transmission Date: 20210420
  Serious: No
  Sender: FDA-Public Use
  Company Number: US-DRREDDYS-USA/USA/21/0132951

PATIENT
  Age: 36 Year
  Sex: Female

DRUGS (1)
  1. ZENATANE [Suspect]
     Active Substance: ISOTRETINOIN
     Indication: PRODUCT USED FOR UNKNOWN INDICATION
     Dosage: RMA ISSUE DATE:11/6/2020 5:20:03 PM,17/7/2020 2:25:20 PM, 26/8/2020 1:47:30 PM, 28/9/2020 2:12:10 PM
     Route: 048

REACTIONS (1)
  - Therapy cessation [Unknown]
